FAERS Safety Report 13347641 (Version 2)
Quarter: 2017Q1

REPORT INFORMATION
  Report Type: Spontaneous
  Country: IT (occurrence: IT)
  Receive Date: 20170317
  Receipt Date: 20170323
  Transmission Date: 20170428
  Serious: Yes (Hospitalization)
  Sender: FDA-Public Use
  Company Number: IT-BIOMARINAP-IT-2017-113283

PATIENT
  Age: 4 Year
  Sex: Male

DRUGS (1)
  1. ALDURAZYME [Suspect]
     Active Substance: LARONIDASE
     Indication: PRODUCT USED FOR UNKNOWN INDICATION
     Dosage: 1500 IU, UNK
     Route: 041
     Dates: start: 20140710

REACTIONS (4)
  - Yellow skin [Not Recovered/Not Resolved]
  - Viral infection [Recovered/Resolved]
  - Inguinal hernia [Unknown]
  - Vomiting [Recovered/Resolved]
